FAERS Safety Report 21999718 (Version 4)
Quarter: 2024Q1

REPORT INFORMATION
  Report Type: Spontaneous
  Country: US (occurrence: US)
  Receive Date: 20230216
  Receipt Date: 20240329
  Transmission Date: 20240410
  Serious: No
  Sender: FDA-Public Use
  Company Number: US-PFIZER INC-PV202300029636

PATIENT
  Age: 82 Year
  Sex: Female

DRUGS (2)
  1. BOSULIF [Suspect]
     Active Substance: BOSUTINIB MONOHYDRATE
     Indication: Chronic myeloid leukaemia
     Dosage: 300 MG
  2. BOSULIF [Suspect]
     Active Substance: BOSUTINIB MONOHYDRATE
     Dosage: TAKE 2 TABLETS (200 MG) DAILY. TAKE WITH FOOD, SWALLOW TABLETS WHOLE. DO NOT CRUSH, SPLIT
     Route: 048

REACTIONS (2)
  - Nasopharyngitis [Unknown]
  - Illness [Unknown]
